FAERS Safety Report 6008037-6 (Version None)
Quarter: 2008Q4

REPORT INFORMATION
  Report Type: 
  Country: None (occurrence: None)
  Receive Date: 20081217
  Receipt Date: 20080805
  Transmission Date: 20090506
  Serious: No
  Sender: FDA-Public Use
  Company Number: US-ASTRAZENECA-2008UW15932

PATIENT
  Age: 63 Year
  Sex: Female
  Weight: 74.8 kg

DRUGS (6)
  1. CRESTOR [Suspect]
     Indication: BLOOD CHOLESTEROL INCREASED
     Route: 048
     Dates: start: 20080605
  2. POTASSIUM CHLORIDE [Concomitant]
  3. PRILOSEC [Concomitant]
     Route: 048
  4. RANITIDINE [Concomitant]
  5. HYDROCHLOROTHIAZINE [Concomitant]
  6. AMOLODIPINE [Concomitant]

REACTIONS (3)
  - MUSCULAR WEAKNESS [None]
  - PARAESTHESIA [None]
  - PERIPHERAL COLDNESS [None]
